FAERS Safety Report 7853931-4 (Version None)
Quarter: 2011Q3

REPORT INFORMATION
  Report Type: 
  Country: None (occurrence: None)
  Receive Date: 20110915
  Receipt Date: 20110629
  Transmission Date: 20111222
  Serious: Yes (Other)
  Sender: FDA-Public Use
  Company Number: DSA_45570_2011

PATIENT
  Sex: Female

DRUGS (10)
  1. TRIHEXYPHEN [Concomitant]
  2. ACETAMINOPHEN AND HYDROCODONE BITARTRATE [Concomitant]
  3. FLEXERIL [Concomitant]
  4. MULTIPLE VITAMINS [Concomitant]
  5. XANAX [Concomitant]
  6. BACLOFEN [Concomitant]
  7. XENAZINE [Suspect]
     Indication: DYSTONIA
     Dosage: (12.5 G BID  ORAL), (12.5 MG QD ORAL), (12.5 MG BID ORAL)
     Route: 048
     Dates: start: 20110501
  8. XENAZINE [Suspect]
     Indication: DYSTONIA
     Dosage: (12.5 G BID  ORAL), (12.5 MG QD ORAL), (12.5 MG BID ORAL)
     Route: 048
     Dates: start: 20110401, end: 20110509
  9. XENAZINE [Suspect]
     Indication: DYSTONIA
     Dosage: (12.5 G BID  ORAL), (12.5 MG QD ORAL), (12.5 MG BID ORAL)
     Route: 048
     Dates: start: 20110510, end: 20110501
  10. CYMBALTA [Concomitant]

REACTIONS (2)
  - SUICIDAL IDEATION [None]
  - DEPRESSION [None]
